FAERS Safety Report 7404781-4 (Version None)
Quarter: 2011Q2

REPORT INFORMATION
  Report Type: 
  Country: None (occurrence: None)
  Receive Date: 20110411
  Receipt Date: 20110406
  Transmission Date: 20111010
  Serious: Yes (Other)
  Sender: FDA-Public Use
  Company Number: US-TEVA-269021USA

PATIENT
  Sex: Male

DRUGS (1)
  1. CLARAVIS [Suspect]
     Dates: end: 20110405

REACTIONS (3)
  - SUICIDE ATTEMPT [None]
  - DEPRESSED MOOD [None]
  - CRYING [None]
